FAERS Safety Report 9734855 (Version 1)
Quarter: 2013Q4

REPORT INFORMATION
  Report Type: Spontaneous
  Country: IL (occurrence: IL)
  Receive Date: 20131206
  Receipt Date: 20131206
  Transmission Date: 20140711
  Serious: Yes (Hospitalization)
  Sender: FDA-Public Use
  Company Number: IL-JNJFOC-20131200205

PATIENT
  Age: 9 Year
  Sex: Female

DRUGS (1)
  1. CONCERTA [Suspect]
     Indication: ATTENTION DEFICIT/HYPERACTIVITY DISORDER
     Route: 048

REACTIONS (7)
  - Abnormal behaviour [Unknown]
  - Delusion [Unknown]
  - Hallucination, auditory [Unknown]
  - Urinary incontinence [Not Recovered/Not Resolved]
  - Akathisia [Not Recovered/Not Resolved]
  - Faecal incontinence [Not Recovered/Not Resolved]
  - Aggression [Not Recovered/Not Resolved]
